FAERS Safety Report 19175809 (Version 2)
Quarter: 2021Q2

REPORT INFORMATION
  Report Type: Report from Study
  Country: US (occurrence: US)
  Receive Date: 20210424
  Receipt Date: 20210604
  Transmission Date: 20210717
  Serious: Yes (Other)
  Sender: FDA-Public Use
  Company Number: US-BRISTOL-MYERS SQUIBB COMPANY-BMS-2021-038489

PATIENT
  Age: 14 Year
  Sex: Female

DRUGS (1)
  1. ABATACEPT [Suspect]
     Active Substance: ABATACEPT
     Indication: MIXED CONNECTIVE TISSUE DISEASE
     Dosage: UNK UNK, QWK
     Route: 058
     Dates: start: 2018

REACTIONS (3)
  - Device malfunction [Unknown]
  - Device leakage [Unknown]
  - Intentional product use issue [Unknown]

NARRATIVE: CASE EVENT DATE: 2018
